FAERS Safety Report 10789672 (Version 1)
Quarter: 2015Q1

REPORT INFORMATION
  Report Type: Spontaneous
  Country: US (occurrence: US)
  Receive Date: 20150212
  Receipt Date: 20150212
  Transmission Date: 20150721
  Serious: Yes (Other)
  Sender: FDA-Public Use
  Company Number: ALCN2014US007287

PATIENT
  Age: 62 Year
  Sex: Male

DRUGS (8)
  1. TETRACAINE STERI-UNITS [Suspect]
     Active Substance: TETRACAINE\TETRACAINE HYDROCHLORIDE
     Indication: INTRAOCULAR LENS IMPLANT
     Dosage: 1 UNK, UNK
     Route: 047
     Dates: start: 20140506, end: 20140506
  2. BSS [Suspect]
     Active Substance: CALCIUM CHLORIDE\MAGNESIUM CHLORIDE\POTASSIUM CHLORIDE\SODIUM ACETATE\SODIUM CHLORIDE\SODIUM CITRATE
     Indication: INTRAOCULAR LENS IMPLANT
     Dosage: 1 UNK, UNK
     Route: 065
     Dates: start: 20140506, end: 20140506
  3. BETADINE [Suspect]
     Active Substance: POVIDONE-IODINE
     Indication: INTRAOCULAR LENS IMPLANT
     Dosage: 1 UNK, UNK
     Route: 047
     Dates: start: 20140506, end: 20140506
  4. TOBRAMYCIN. [Suspect]
     Active Substance: TOBRAMYCIN
     Indication: INTRAOCULAR LENS IMPLANT
     Dosage: UNK
     Route: 047
     Dates: start: 20140506, end: 20140506
  5. MAXITROL [Suspect]
     Active Substance: DEXAMETHASONE\NEOMYCIN SULFATE\POLYMYXIN B SULFATE
     Indication: INTRAOCULAR LENS IMPLANT
     Dosage: 1 UNK, UNK
     Route: 047
     Dates: start: 20140506, end: 20140506
  6. VANCOMYCIN [Concomitant]
     Active Substance: VANCOMYCIN
     Indication: INTRAOCULAR LENS IMPLANT
     Dosage: 1 UNK, UNK
     Route: 047
     Dates: start: 20140506, end: 20140506
  7. LIDOCAINE AND EPINEPHRINE [Concomitant]
     Active Substance: EPINEPHRINE\LIDOCAINE HYDROCHLORIDE
     Indication: INTRAOCULAR LENS IMPLANT
     Dosage: 1 UNK, UNK
     Route: 047
     Dates: start: 20140506, end: 20140506
  8. TIMOPTIC [Concomitant]
     Active Substance: TIMOLOL MALEATE
     Indication: INTRAOCULAR LENS IMPLANT
     Dosage: 1 UNK, UNK
     Route: 047
     Dates: start: 20140506, end: 20140506

REACTIONS (1)
  - Toxic anterior segment syndrome [Recovered/Resolved]

NARRATIVE: CASE EVENT DATE: 20140507
